FAERS Safety Report 16988906 (Version 4)
Quarter: 2020Q4

REPORT INFORMATION
  Report Type: Report from Study
  Country: US (occurrence: US)
  Receive Date: 20191104
  Receipt Date: 20201120
  Transmission Date: 20210113
  Serious: Yes (Other)
  Sender: FDA-Public Use
  Company Number: US-ASTELLAS-2019US012550

PATIENT
  Age: 64 Year
  Sex: Female

DRUGS (2)
  1. MIRABEGRON [Suspect]
     Active Substance: MIRABEGRON
     Indication: HYPERTONIC BLADDER
     Dosage: 50 MG, ONCE DAILY (MORNING)
     Route: 048
     Dates: start: 20160112
  2. VESICARE [Suspect]
     Active Substance: SOLIFENACIN SUCCINATE
     Indication: HYPERTONIC BLADDER
     Dosage: UNK, ONCE DAILY (AT NIGHT)
     Route: 048
     Dates: start: 201902, end: 202002

REACTIONS (5)
  - Sleep apnoea syndrome [Unknown]
  - Nephrolithiasis [Recovered/Resolved]
  - Loss of personal independence in daily activities [Unknown]
  - Cholelithiasis [Recovered/Resolved]
  - Urinary retention [Unknown]

NARRATIVE: CASE EVENT DATE: 20201101
